FAERS Safety Report 7539715-5 (Version None)
Quarter: 2011Q2

REPORT INFORMATION
  Report Type: 
  Country: None (occurrence: None)
  Receive Date: 20110610
  Receipt Date: 20100709
  Transmission Date: 20111010
  Serious: Yes (Other)
  Sender: FDA-Public Use
  Company Number: US-BAYER-201015291NA

PATIENT
  Age: 31 Year
  Sex: Female

DRUGS (42)
  1. DILANTIN [Concomitant]
     Indication: EPILEPSY
  2. AMLODIPINE [Concomitant]
  3. PHENYTOIN [Concomitant]
  4. MAGNEVIST [Suspect]
     Indication: NUCLEAR MAGNETIC RESONANCE IMAGING
  5. OMNISCAN [Suspect]
     Indication: NUCLEAR MAGNETIC RESONANCE IMAGING
  6. PROHANCE [Suspect]
     Indication: ANGIOGRAM
  7. METHADONE HCL [Concomitant]
     Indication: PAIN
  8. LOVENOX [Concomitant]
  9. DEPAKOTE [Concomitant]
  10. LAMICTAL [Concomitant]
  11. VITAMIN K TAB [Concomitant]
  12. MULTIHANCE [Suspect]
     Indication: NUCLEAR MAGNETIC RESONANCE IMAGING
  13. DIAZEPAM [Concomitant]
  14. PLENDIL [Concomitant]
  15. HEPARIN [Concomitant]
  16. MAGNEVIST [Suspect]
     Indication: ANGIOGRAM
     Dosage: UNK
     Dates: start: 20070118, end: 20070118
  17. OPTIMARK [Suspect]
     Indication: ANGIOGRAM
  18. CLONIDINE [Concomitant]
  19. NORVASC [Concomitant]
     Dosage: 10 MG BID
     Dates: start: 20031209
  20. LABETALOL HCL [Concomitant]
     Dosage: 400 MG TID
  21. MORPHINE [Concomitant]
  22. LIDOCAINE [Concomitant]
  23. IBUPROFEN [Concomitant]
  24. COUMADIN [Concomitant]
  25. PRAVASTATIN [Concomitant]
     Indication: BLOOD CHOLESTEROL INCREASED
  26. ENOXAPARIN [Concomitant]
  27. METOPROLOL SUCCINATE [Concomitant]
  28. PREDNISONE [Concomitant]
  29. CARDURA [Concomitant]
  30. OMNISCAN [Suspect]
     Indication: ANGIOGRAM
     Dates: start: 20030922, end: 20030922
  31. OPTIMARK [Suspect]
     Indication: NUCLEAR MAGNETIC RESONANCE IMAGING
  32. GADOLINIUM IN UNSPECIFIED DRUG [Suspect]
     Dates: start: 20030110, end: 20030110
  33. ASPIRIN [Concomitant]
  34. GADOLINIUM IN UNSPECIFIED DRUG [Suspect]
     Dates: start: 20070118, end: 20070118
  35. PROMETHAZINE [Concomitant]
  36. ACCUPRIL [Concomitant]
     Dosage: 40 MG BID
     Dates: start: 20031209
  37. VICODIN [Concomitant]
  38. RENAGEL [Concomitant]
  39. CARDIZEM [Concomitant]
  40. AMIODARONE HCL [Concomitant]
  41. MULTIHANCE [Suspect]
     Indication: ANGIOGRAM
  42. PROHANCE [Suspect]
     Indication: NUCLEAR MAGNETIC RESONANCE IMAGING

REACTIONS (22)
  - MUSCULOSKELETAL STIFFNESS [None]
  - ARTHRALGIA [None]
  - SKIN TIGHTNESS [None]
  - JOINT STIFFNESS [None]
  - EXFOLIATIVE RASH [None]
  - PAIN IN EXTREMITY [None]
  - MYALGIA [None]
  - SKIN BURNING SENSATION [None]
  - JOINT RANGE OF MOTION DECREASED [None]
  - DRY SKIN [None]
  - PAIN [None]
  - JOINT CONTRACTURE [None]
  - EXTREMITY CONTRACTURE [None]
  - SKIN DISCOLOURATION [None]
  - ATROPHY [None]
  - OEDEMA PERIPHERAL [None]
  - SKIN SWELLING [None]
  - GENERALISED OEDEMA [None]
  - NEPHROGENIC SYSTEMIC FIBROSIS [None]
  - GAIT DISTURBANCE [None]
  - SKIN HYPERTROPHY [None]
  - PRURITUS [None]
